FAERS Safety Report 4951668-2 (Version None)
Quarter: 2006Q1

REPORT INFORMATION
  Report Type: 
  Country: None (occurrence: None)
  Receive Date: 20060322
  Receipt Date: 20060322
  Transmission Date: 20060701
  Serious: Yes (Life-Threatening)
  Sender: FDA-Public Use
  Company Number: None

PATIENT
  Sex: Female
  Weight: 73.6 kg

DRUGS (1)
  1. ISOVUE-370 [Suspect]
     Indication: CHEST PAIN
     Dosage: 1 DOSE
     Dates: start: 20060216, end: 20060216

REACTIONS (1)
  - ANAPHYLACTOID REACTION [None]
